FAERS Safety Report 15892386 (Version 1)
Quarter: 2019Q1

REPORT INFORMATION
  Report Type: Report from Study
  Country: US (occurrence: US)
  Receive Date: 20190130
  Receipt Date: 20190130
  Transmission Date: 20190417
  Serious: No
  Sender: FDA-Public Use
  Company Number: US-EXELIXIS-CABO-18014924

PATIENT
  Sex: Female

DRUGS (14)
  1. PROCHLORPERAZINE. [Concomitant]
     Active Substance: PROCHLORPERAZINE
  2. COMETRIQ [Suspect]
     Active Substance: CABOZANTINIB S-MALATE
     Indication: THYROID CANCER
     Dosage: 140 MG, QD
     Route: 048
     Dates: start: 20180702, end: 201807
  3. COMETRIQ [Suspect]
     Active Substance: CABOZANTINIB S-MALATE
     Dosage: 100 MG, QD
     Route: 048
     Dates: start: 201807
  4. LEVOTHYROXINE SODIUM. [Concomitant]
     Active Substance: LEVOTHYROXINE SODIUM
  5. LOMOTIL [Concomitant]
     Active Substance: ATROPINE SULFATE\DIPHENOXYLATE HYDROCHLORIDE
  6. SINGULAIR [Concomitant]
     Active Substance: MONTELUKAST SODIUM
  7. MEGESTROL ACETATE. [Concomitant]
     Active Substance: MEGESTROL ACETATE
  8. PROBIOTIC [Concomitant]
     Active Substance: PROBIOTICS NOS
  9. LEVSIN [Concomitant]
     Active Substance: HYOSCYAMINE SULFATE
  10. TRAMADOL. [Concomitant]
     Active Substance: TRAMADOL
  11. OXYCODONE [Concomitant]
     Active Substance: OXYCODONE
  12. CODEINE PHOSPHATE [Concomitant]
     Active Substance: CODEINE PHOSPHATE
  13. COMETRIQ [Suspect]
     Active Substance: CABOZANTINIB S-MALATE
     Dosage: 100 MG, QD
     Route: 048
     Dates: start: 20180822, end: 20180904
  14. ESTRACE [Concomitant]
     Active Substance: ESTRADIOL

REACTIONS (9)
  - Constipation [Unknown]
  - Hyperchlorhydria [Unknown]
  - Hot flush [Unknown]
  - Diarrhoea [Unknown]
  - Alopecia [Unknown]
  - Pain in extremity [Unknown]
  - Pain of skin [Unknown]
  - Blister [Not Recovered/Not Resolved]
  - Oral candidiasis [Unknown]

NARRATIVE: CASE EVENT DATE: 2018
